FAERS Safety Report 4974984-7 (Version None)
Quarter: 2006Q2

REPORT INFORMATION
  Report Type: 
  Country: None (occurrence: None)
  Receive Date: 20060418
  Receipt Date: 20060314
  Transmission Date: 20061013
  Serious: Yes (Other)
  Sender: FDA-Public Use
  Company Number: GB-ABBOTT-06P-167-0328133-00

PATIENT
  Sex: Female

DRUGS (2)
  1. KLACID I.V. [Suspect]
     Indication: DRUG USE FOR UNKNOWN INDICATION
     Route: 040
     Dates: start: 20060203, end: 20060203
  2. METRONIDAZOLE [Concomitant]
     Indication: DRUG USE FOR UNKNOWN INDICATION

REACTIONS (5)
  - DRUG ADMINISTRATION ERROR [None]
  - FEELING HOT AND COLD [None]
  - FLASHBACK [None]
  - PAIN [None]
  - SENSORY DISTURBANCE [None]
